FAERS Safety Report 16291456 (Version 1)
Quarter: 2019Q2

REPORT INFORMATION
  Report Type: Spontaneous
  Country: US (occurrence: US)
  Receive Date: 20190509
  Receipt Date: 20190509
  Transmission Date: 20190711
  Serious: No
  Sender: FDA-Public Use
  Company Number: US-GLAXOSMITHKLINE-US2019AMR078831

PATIENT
  Sex: Female

DRUGS (1)
  1. NUCALA [Suspect]
     Active Substance: MEPOLIZUMAB
     Indication: EOSINOPHILIC GRANULOMATOSIS WITH POLYANGIITIS
     Route: 065

REACTIONS (15)
  - Headache [Unknown]
  - Nausea [Unknown]
  - Hypoaesthesia [Unknown]
  - Asthenia [Recovered/Resolved]
  - Cushingoid [Unknown]
  - Bedridden [Unknown]
  - Fibromyalgia [Unknown]
  - Weight increased [Unknown]
  - Malaise [Unknown]
  - Paraesthesia [Recovered/Resolved]
  - Fatigue [Unknown]
  - Vomiting [Unknown]
  - Asthma [Recovered/Resolved]
  - Pain [Unknown]
  - Feeling abnormal [Unknown]
